FAERS Safety Report 20647291 (Version 1)
Quarter: 2022Q1

REPORT INFORMATION
  Report Type: Spontaneous
  Country: LV (occurrence: LV)
  Receive Date: 20220329
  Receipt Date: 20220329
  Transmission Date: 20220423
  Serious: Yes (Other)
  Sender: FDA-Public Use
  Company Number: LV-VALIDUS PHARMACEUTICALS LLC-LV-VDP-2022-015282

PATIENT

DRUGS (6)
  1. FUROSEMIDE [Suspect]
     Active Substance: FUROSEMIDE
     Indication: Hypercalcaemia
     Dosage: 10 MG, BID
     Route: 065
  2. CHOLECALCIFEROL [Suspect]
     Active Substance: CHOLECALCIFEROL
     Indication: Supplementation therapy
     Dosage: 1000 IU
     Route: 065
  3. FISH OIL [Suspect]
     Active Substance: FISH OIL
     Indication: Supplementation therapy
     Dosage: UNK
     Route: 065
  4. IRON [Suspect]
     Active Substance: IRON
     Indication: Anaemia
     Dosage: UNK
     Route: 042
  5. MAGNESIUM [Suspect]
     Active Substance: MAGNESIUM
     Indication: Supplementation therapy
     Dosage: UNK
     Route: 065
  6. METHYLDOPA [Suspect]
     Active Substance: METHYLDOPA
     Indication: Hypertensive crisis
     Dosage: 250 MG, TID
     Route: 065

REACTIONS (4)
  - Foetal death [Unknown]
  - Hypercalcaemia [Recovering/Resolving]
  - Drug ineffective [Unknown]
  - Exposure during pregnancy [Unknown]
